FAERS Safety Report 7643685-9 (Version None)
Quarter: 2011Q3

REPORT INFORMATION
  Report Type: 
  Country: None (occurrence: None)
  Receive Date: 20110729
  Receipt Date: 20110726
  Transmission Date: 20111222
  Serious: Yes (Death, Hospitalization, Other)
  Sender: FDA-Public Use
  Company Number: PHHY2011US66455

PATIENT
  Sex: Male
  Weight: 58.957 kg

DRUGS (1)
  1. EXJADE [Suspect]
     Indication: NEOPLASM
     Dosage: 500 MG DAILY
     Route: 048
     Dates: start: 20090309, end: 20110701

REACTIONS (13)
  - HYPOTENSION [None]
  - PYREXIA [None]
  - MENTAL STATUS CHANGES [None]
  - CEREBRAL HAEMATOMA [None]
  - CEREBRAL HAEMORRHAGE [None]
  - CARDIO-RESPIRATORY ARREST [None]
  - PANCYTOPENIA [None]
  - FEBRILE NEUTROPENIA [None]
  - SEPTIC SHOCK [None]
  - INTRACRANIAL PRESSURE INCREASED [None]
  - GENERAL PHYSICAL HEALTH DETERIORATION [None]
  - COUGH [None]
  - CHEST PAIN [None]
